FAERS Safety Report 7756146-3 (Version None)
Quarter: 2011Q3

REPORT INFORMATION
  Report Type: 
  Country: None (occurrence: None)
  Receive Date: 20110916
  Receipt Date: 20100907
  Transmission Date: 20111222
  Serious: No
  Sender: FDA-Public Use
  Company Number: US-BAYER-201035391NA

PATIENT
  Sex: Female

DRUGS (1)
  1. MIRENA [Suspect]
     Dosage: 20 ?G/D, CONT
     Route: 015
     Dates: end: 20100903

REACTIONS (8)
  - MEDICAL DEVICE DISCOMFORT [None]
  - VAGINAL HAEMORRHAGE [None]
  - DEVICE EXPULSION [None]
  - BREAST PAIN [None]
  - BREAST TENDERNESS [None]
  - ABDOMINAL PAIN LOWER [None]
  - MENSTRUAL DISORDER [None]
  - BREAST SWELLING [None]
